FAERS Safety Report 6779872-1 (Version None)
Quarter: 2010Q2

REPORT INFORMATION
  Report Type: 
  Country: None (occurrence: None)
  Receive Date: 20100618
  Receipt Date: 20100610
  Transmission Date: 20101027
  Serious: Yes (Other)
  Sender: FDA-Public Use
  Company Number: DE-JNJFOC-20100508988

PATIENT
  Age: 53 Year
  Sex: Male

DRUGS (5)
  1. REMICADE [Suspect]
     Indication: GOUTY ARTHRITIS
     Route: 042
  2. REMICADE [Suspect]
     Dosage: 10 INFUSION
     Route: 042
  3. REMICADE [Suspect]
     Indication: RHEUMATOID ARTHRITIS
     Route: 042
  4. REMICADE [Suspect]
     Dosage: 10 INFUSION
     Route: 042
  5. METHOTREXATE [Concomitant]
     Indication: RHEUMATOID ARTHRITIS

REACTIONS (10)
  - CHEST DISCOMFORT [None]
  - DYSPNOEA [None]
  - ERYTHEMA [None]
  - HYPERTENSION [None]
  - INFUSION RELATED REACTION [None]
  - OCULAR HYPERAEMIA [None]
  - PALPITATIONS [None]
  - PARAESTHESIA [None]
  - PRURITUS [None]
  - RASH [None]
